FAERS Safety Report 9898052 (Version 1)
Quarter: 2014Q1

REPORT INFORMATION
  Report Type: Spontaneous
  Country: US (occurrence: US)
  Receive Date: 20140214
  Receipt Date: 20140214
  Transmission Date: 20141002
  Serious: Yes (Disabling, Other)
  Sender: FDA-Public Use
  Company Number: US-009507513-1402USA004772

PATIENT
  Sex: Male

DRUGS (3)
  1. AZASITE [Suspect]
     Indication: CONJUNCTIVITIS BACTERIAL
     Dosage: 1 DROP IN BOTH EYES TWICE DAILY
     Route: 047
     Dates: start: 2011
  2. AZASITE [Suspect]
     Indication: BLEPHARITIS
     Dosage: 1 DROP IN BOTH EYES TWICE DAILY
     Route: 047
     Dates: start: 2011
  3. AZASITE [Suspect]
     Dosage: IN THE RIGHT EYE
     Route: 047
     Dates: start: 201402

REACTIONS (5)
  - Femur fracture [Recovered/Resolved]
  - Fall [Unknown]
  - Conjunctivitis bacterial [Not Recovered/Not Resolved]
  - Disease recurrence [Not Recovered/Not Resolved]
  - Blepharitis [Not Recovered/Not Resolved]
